FAERS Safety Report 6229939-1 (Version None)
Quarter: 2009Q2

REPORT INFORMATION
  Report Type: 
  Country: None (occurrence: None)
  Receive Date: 20090615
  Receipt Date: 20090605
  Transmission Date: 20091009
  Serious: Yes (Hospitalization, Other)
  Sender: FDA-Public Use
  Company Number: US-ELI_LILLY_AND_COMPANY-US200906001516

PATIENT
  Sex: Female
  Weight: 109.75 kg

DRUGS (14)
  1. BYETTA [Suspect]
     Indication: TYPE 2 DIABETES MELLITUS
     Dosage: 5 UG, 2/D
     Route: 058
  2. BYETTA [Suspect]
     Dosage: 10 UG, 2/D
     Route: 058
  3. GLUCOTROL XL [Concomitant]
     Dosage: UNK, 2/D
  4. POTASSIUM CHLORIDE [Concomitant]
  5. PREVACID [Concomitant]
  6. TRICOR [Concomitant]
  7. EVISTA [Concomitant]
  8. XANAX [Concomitant]
  9. ANALGESICS [Concomitant]
  10. VITAMINS [Concomitant]
  11. GARLIC [Concomitant]
  12. MULTI-VITAMIN [Concomitant]
  13. CALCIUM [Concomitant]
  14. SEROQUEL [Concomitant]

REACTIONS (8)
  - BLOOD GLUCOSE INCREASED [None]
  - DIZZINESS [None]
  - EPISTAXIS [None]
  - FATIGUE [None]
  - HYPOGLYCAEMIC UNCONSCIOUSNESS [None]
  - IRRITABILITY [None]
  - PARAESTHESIA [None]
  - WEIGHT FLUCTUATION [None]
